FAERS Safety Report 8177758-1 (Version None)
Quarter: 2012Q1

REPORT INFORMATION
  Report Type: 
  Country: None (occurrence: None)
  Receive Date: 20120301
  Receipt Date: 20120227
  Transmission Date: 20120608
  Serious: Yes (Other)
  Sender: FDA-Public Use
  Company Number: US-PFIZER INC-2012051908

PATIENT
  Age: 50 Year
  Sex: Female
  Weight: 83.447 kg

DRUGS (1)
  1. DILANTIN [Suspect]
     Indication: CONVULSION
     Dosage: 500 MG, DAILY
     Route: 048
     Dates: start: 19870101

REACTIONS (1)
  - CONVULSION [None]
